FAERS Safety Report 24671045 (Version 1)
Quarter: 2024Q4

REPORT INFORMATION
  Report Type: Report from Study
  Country: GB (occurrence: GB)
  Receive Date: 20241127
  Receipt Date: 20241127
  Transmission Date: 20250115
  Serious: Yes (Other)
  Sender: NOVARTIS
  Company Number: GB-002147023-NVSC2024GB168851

PATIENT
  Sex: Female

DRUGS (1)
  1. MAYZENT [Suspect]
     Active Substance: SIPONIMOD
     Indication: Secondary progressive multiple sclerosis
     Dosage: 2 MG, QD
     Route: 048

REACTIONS (8)
  - Fall [Recovered/Resolved]
  - Pain [Recovered/Resolved]
  - Multiple sclerosis [Unknown]
  - Contusion [Recovered/Resolved]
  - Psychiatric symptom [Recovered/Resolved]
  - Fall [Not Recovered/Not Resolved]
  - Pain [Unknown]
  - Mobility decreased [Unknown]

NARRATIVE: CASE EVENT DATE: 20240601
